FAERS Safety Report 6955365-3 (Version None)
Quarter: 2010Q3

REPORT INFORMATION
  Report Type: 
  Country: None (occurrence: None)
  Receive Date: 20100830
  Receipt Date: 20100817
  Transmission Date: 20110219
  Serious: Yes (Other)
  Sender: FDA-Public Use
  Company Number: GB-ELI_LILLY_AND_COMPANY-GB201008006190

PATIENT
  Age: 67 Year
  Sex: Female
  Weight: 59 kg

DRUGS (5)
  1. GEMZAR [Suspect]
     Indication: PANCREATIC CARCINOMA
     Dosage: 1558 MG, UNKNOWN
     Route: 042
     Dates: start: 20100722, end: 20100722
  2. ACETAMINOPHEN AND CODEINE PHOSPHATE [Concomitant]
     Dosage: UNK, UNKNOWN
     Route: 048
  3. GLICLAZIDE [Concomitant]
     Dosage: UNK, UNKNOWN
     Route: 048
  4. OMEPRAZOLE [Concomitant]
     Dosage: UNK, UNKNOWN
     Route: 048
  5. SIMVASTATIN [Concomitant]
     Dosage: UNK, UNKNOWN
     Route: 048

REACTIONS (4)
  - ASTHENIA [None]
  - MUSCLE SPASMS [None]
  - PAIN IN EXTREMITY [None]
  - PYREXIA [None]
